FAERS Safety Report 4919625-X (Version None)
Quarter: 2006Q1

REPORT INFORMATION
  Report Type: 
  Country: None (occurrence: None)
  Receive Date: 20060222
  Receipt Date: 20051020
  Transmission Date: 20060701
  Serious: Yes (Other)
  Sender: FDA-Public Use
  Company Number: US-MERCK-0510USA08178

PATIENT
  Age: 67 Year
  Sex: Female

DRUGS (8)
  1. VIOXX [Suspect]
     Indication: CONTUSION
     Route: 048
     Dates: start: 20010401
  2. VIOXX [Suspect]
     Route: 048
  3. VIOXX [Suspect]
     Indication: ARTHRITIS
     Route: 048
     Dates: start: 20010401
  4. VIOXX [Suspect]
     Route: 048
  5. ATACAND [Concomitant]
     Indication: HYPERTENSION
     Route: 065
  6. ACTOS [Suspect]
     Route: 065
  7. HYDROCHLOROTHIAZIDE [Concomitant]
     Route: 065
  8. CARDIZEM CD [Concomitant]
     Indication: HYPERTENSION
     Route: 065

REACTIONS (6)
  - ASTHMA [None]
  - CYST [None]
  - DYSPNOEA [None]
  - FLUID RETENTION [None]
  - HYPOAESTHESIA [None]
  - MYOCARDIAL INFARCTION [None]
